FAERS Safety Report 5229676-6 (Version None)
Quarter: 2007Q1

REPORT INFORMATION
  Report Type: 
  Country: None (occurrence: None)
  Receive Date: 20070201
  Receipt Date: 20070119
  Transmission Date: 20070707
  Serious: Yes (Other)
  Sender: FDA-Public Use
  Company Number: 2007US-05462

PATIENT
  Age: 62 Year
  Sex: Female

DRUGS (3)
  1. MODAFINIL [Suspect]
     Indication: DEPRESSION
     Dosage: 100 MG, QD, ORAL; SEE IMAGE
     Route: 048
  2. OLANZAPINE [Concomitant]
  3. VENLAFAXINE HCL [Concomitant]

REACTIONS (4)
  - CYCLOTHYMIC DISORDER [None]
  - DEPRESSIVE SYMPTOM [None]
  - INSOMNIA [None]
  - MANIA [None]
